FAERS Safety Report 7686902-1 (Version None)
Quarter: 2011Q3

REPORT INFORMATION
  Report Type: 
  Country: None (occurrence: None)
  Receive Date: 20110816
  Receipt Date: 20110809
  Transmission Date: 20111222
  Serious: Yes (Other)
  Sender: FDA-Public Use
  Company Number: US-BAYER-2011-071143

PATIENT
  Age: 30 Year
  Sex: Female

DRUGS (1)
  1. MIRENA [Suspect]
     Indication: CONTRACEPTION
     Dosage: 20 MCG/24HR, CONT
     Route: 015
     Dates: start: 20110414, end: 20110809

REACTIONS (9)
  - HEADACHE [None]
  - VAGINAL DISCHARGE [None]
  - INSOMNIA [None]
  - DIZZINESS [None]
  - NAUSEA [None]
  - ALOPECIA [None]
  - LABYRINTHITIS [None]
  - HOT FLUSH [None]
  - ERYTHEMA [None]
